FAERS Safety Report 23152124 (Version 1)
Quarter: 2023Q4

REPORT INFORMATION
  Report Type: Spontaneous
  Country: IT (occurrence: IT)
  Receive Date: 20231107
  Receipt Date: 20231107
  Transmission Date: 20240109
  Serious: Yes (Death)
  Sender: FDA-Public Use
  Company Number: IT-CELGENE-ITA-20210607571

PATIENT
  Age: 70 Year
  Sex: Male

DRUGS (38)
  1. AZACITIDINE [Suspect]
     Active Substance: AZACITIDINE
     Indication: Acute myeloid leukaemia
     Dosage: FREQUENCY TEXT: NOT PROVIDED
     Dates: start: 20210208
  2. PEVONEDISTAT [Suspect]
     Active Substance: PEVONEDISTAT
     Indication: Acute myeloid leukaemia
     Dosage: FREQUENCY TEXT: NOT PROVIDED
     Dates: start: 20210208
  3. VENETOCLAX [Suspect]
     Active Substance: VENETOCLAX
     Indication: Acute myeloid leukaemia
     Dosage: FREQUENCY TEXT: NOT PROVIDED
     Dates: start: 20210208
  4. ROSUVASTATIN [Concomitant]
     Active Substance: ROSUVASTATIN
     Indication: Prophylaxis
     Dosage: FREQUENCY TEXT: NOT PROVIDED
     Dates: start: 2014
  5. GRANISETRON [Concomitant]
     Active Substance: GRANISETRON
     Indication: Nausea
     Dosage: FREQUENCY TEXT: NOT PROVIDED
     Route: 048
     Dates: start: 20210307, end: 20210526
  6. GRANISETRON [Concomitant]
     Active Substance: GRANISETRON
     Indication: Vomiting
  7. OMEPRAZOLE [Concomitant]
     Active Substance: OMEPRAZOLE
     Indication: Abdominal pain upper
     Dosage: FREQUENCY TEXT: NOT PROVIDED
     Dates: start: 20210308
  8. OMEPRAZOLE [Concomitant]
     Active Substance: OMEPRAZOLE
     Indication: Prophylaxis
  9. POSACONAZOLE [Concomitant]
     Active Substance: POSACONAZOLE
     Indication: Infection prophylaxis
     Dosage: FREQUENCY TEXT: NOT PROVIDED
     Dates: start: 20210308
  10. DEXAMETHASONE [Concomitant]
     Active Substance: DEXAMETHASONE
     Indication: Nausea
     Dosage: FREQUENCY TEXT: NOT PROVIDED
     Dates: start: 20210307
  11. TAMSULOSIN HYDROCHLORIDE [Concomitant]
     Active Substance: TAMSULOSIN HYDROCHLORIDE
     Indication: Benign prostatic hyperplasia
     Dosage: FREQUENCY TEXT: NOT PROVIDED
     Dates: start: 20210308
  12. POTASSIUM CHLORIDE [Concomitant]
     Active Substance: POTASSIUM CHLORIDE
     Indication: Mineral supplementation
     Dosage: FREQUENCY TEXT: NOT PROVIDED
     Dates: start: 20210511, end: 20210606
  13. POTASSIUM CHLORIDE [Concomitant]
     Active Substance: POTASSIUM CHLORIDE
     Indication: Pulmonary congestion
  14. LEVOSULPIRIDE [Concomitant]
     Active Substance: LEVOSULPIRIDE
     Indication: Prophylaxis of nausea and vomiting
     Dosage: FREQUENCY TEXT: NOT PROVIDED
     Dates: start: 20210513, end: 20210526
  15. LEVOFLOXACIN [Concomitant]
     Active Substance: LEVOFLOXACIN
     Indication: Infection prophylaxis
     Dosage: FREQUENCY TEXT: NOT PROVIDED
     Dates: start: 20210513
  16. TRAMADOL [Concomitant]
     Active Substance: TRAMADOL\TRAMADOL HYDROCHLORIDE
     Indication: Pain in extremity
     Dosage: FREQUENCY TEXT: NOT PROVIDED
     Dates: start: 20210513, end: 20210526
  17. DIETARY SUPPLEMENT [Concomitant]
     Active Substance: DIETARY SUPPLEMENT
     Indication: Psychotherapy
     Dosage: FREQUENCY TEXT: NOT PROVIDED
     Dates: start: 20210513
  18. TALOFEN [Concomitant]
     Active Substance: PROMAZINE HYDROCHLORIDE
     Indication: Disorientation
     Dosage: FREQUENCY TEXT: NOT PROVIDED
     Dates: start: 20210513, end: 20210528
  19. SPIRONOLACTONE [Concomitant]
     Active Substance: SPIRONOLACTONE
     Indication: Respiratory tract congestion
     Dosage: FREQUENCY TEXT: NOT PROVIDED
     Dates: start: 20210516
  20. PREDNISONE [Concomitant]
     Active Substance: PREDNISONE
     Indication: Pain in extremity
     Dosage: FREQUENCY TEXT: NOT PROVIDED
     Dates: start: 20210516
  21. ACETAMINOPHEN [Concomitant]
     Active Substance: ACETAMINOPHEN
     Indication: Pain in extremity
     Dosage: FREQUENCY TEXT: NOT PROVIDED
     Dates: start: 20210526
  22. ACETAMINOPHEN [Concomitant]
     Active Substance: ACETAMINOPHEN
     Indication: Septic shock
  23. CLAVULANIC ACID [Concomitant]
     Active Substance: CLAVULANIC ACID
     Indication: Product used for unknown indication
     Dosage: FREQUENCY TEXT: NOT PROVIDED
     Dates: start: 20210529, end: 20210529
  24. METOPROLOL [Concomitant]
     Active Substance: METOPROLOL
     Indication: Tachycardia
     Dosage: FREQUENCY TEXT: NOT PROVIDED
     Dates: start: 20210315
  25. METOPROLOL [Concomitant]
     Active Substance: METOPROLOL
     Indication: Prophylaxis
  26. DIGOXIN [Concomitant]
     Active Substance: DIGOXIN
     Indication: Atrial fibrillation
     Dosage: FREQUENCY TEXT: NOT PROVIDED
     Dates: start: 20210529, end: 20210530
  27. DIGOXIN [Concomitant]
     Active Substance: DIGOXIN
     Indication: Tachycardia
  28. PIPERACILLIN SODIUM [Concomitant]
     Active Substance: PIPERACILLIN SODIUM
     Indication: Product used for unknown indication
     Dosage: FREQUENCY TEXT: NOT PROVIDED
     Dates: start: 20210529, end: 20210529
  29. TAZOBACTAM [Concomitant]
     Active Substance: TAZOBACTAM
     Indication: Product used for unknown indication
     Dosage: FREQUENCY TEXT: NOT PROVIDED
     Dates: start: 20210529, end: 20210529
  30. MEROPENEM [Concomitant]
     Active Substance: MEROPENEM
     Indication: Septic shock
     Dosage: FREQUENCY TEXT: NOT PROVIDED
     Dates: start: 20210530, end: 20210607
  31. AMIODARONE [Concomitant]
     Active Substance: AMIODARONE
     Indication: Tachycardia
     Dosage: FREQUENCY TEXT: NOT PROVIDED
     Dates: start: 20210530
  32. VANCOMYCIN [Concomitant]
     Active Substance: VANCOMYCIN
     Indication: Septic shock
     Dosage: FREQUENCY TEXT: NOT PROVIDED
     Dates: start: 20210531
  33. VANCOMYCIN [Concomitant]
     Active Substance: VANCOMYCIN
     Indication: Abscess limb
  34. HALOPERIDOL [Concomitant]
     Active Substance: HALOPERIDOL
     Indication: Psychomotor hyperactivity
     Dosage: FREQUENCY TEXT: NOT PROVIDED
     Dates: start: 20210531, end: 20210606
  35. QUETIAPINE [Concomitant]
     Active Substance: QUETIAPINE
     Indication: Psychomotor hyperactivity
     Dosage: FREQUENCY TEXT: NOT PROVIDED
     Dates: start: 20210601
  36. PROMAZINE [Concomitant]
     Active Substance: PROMAZINE
     Indication: Psychomotor hyperactivity
     Dosage: FREQUENCY TEXT: NOT PROVIDED
     Dates: start: 20210606, end: 20210606
  37. MAGNESIUM [Concomitant]
     Active Substance: MAGNESIUM
     Indication: Hypomagnesaemia
     Dosage: FREQUENCY TEXT: NOT PROVIDED
     Dates: start: 20210516
  38. AMOXICILLIN [Concomitant]
     Active Substance: AMOXICILLIN
     Indication: Septic shock
     Dosage: FREQUENCY TEXT: NOT PROVIDED
     Dates: start: 20210529, end: 20210529

REACTIONS (1)
  - General physical health deterioration [Fatal]

NARRATIVE: CASE EVENT DATE: 20210617
